FAERS Safety Report 4846006-X (Version None)
Quarter: 2005Q4

REPORT INFORMATION
  Report Type: 
  Country: None (occurrence: None)
  Receive Date: 20051206
  Receipt Date: 20051124
  Transmission Date: 20060501
  Serious: Yes (Hospitalization)
  Sender: FDA-Public Use
  Company Number: FR-BRISTOL-MYERS SQUIBB COMPANY-13197983

PATIENT
  Age: 50 Year
  Sex: Male

DRUGS (2)
  1. GLUCOPHAGE [Suspect]
     Indication: DIABETES MELLITUS NON-INSULIN-DEPENDENT
     Route: 048
  2. LIPANTHYL [Concomitant]
     Indication: HYPERCHOLESTEROLAEMIA

REACTIONS (2)
  - PH URINE DECREASED [None]
  - RENAL COLIC [None]
